FAERS Safety Report 9779780 (Version 2)
Quarter: 2014Q1

REPORT INFORMATION
  Report Type: Spontaneous
  Country: BR (occurrence: BR)
  Receive Date: 20131223
  Receipt Date: 20140114
  Transmission Date: 20141002
  Serious: Yes (Death)
  Sender: FDA-Public Use
  Company Number: BR-SA-2013SA132841

PATIENT
  Age: 7 Month
  Sex: 0

DRUGS (1)
  1. MYOZYME [Suspect]
     Indication: GLYCOGEN STORAGE DISEASE TYPE II
     Route: 042

REACTIONS (5)
  - Septic shock [Fatal]
  - Sepsis [Fatal]
  - Hypertrophic cardiomyopathy [Fatal]
  - Hypotonia [Fatal]
  - Respiratory failure [Fatal]
